FAERS Safety Report 11018462 (Version 2)
Quarter: 2015Q2

REPORT INFORMATION
  Report Type: Spontaneous
  Country: US (occurrence: US)
  Receive Date: 20150412
  Receipt Date: 20150524
  Transmission Date: 20150821
  Serious: Yes (Other)
  Sender: FDA-Public Use
  Company Number: US-JNJFOC-20130610097

PATIENT

DRUGS (24)
  1. DOXORUBICIN [Suspect]
     Active Substance: DOXORUBICIN
     Indication: ACUTE LYMPHOCYTIC LEUKAEMIA
     Dosage: CYCLES 1, 3, 5, 7 OR CYCLES 1, 4, 6,8 CONTINUOUS INFUSION 2-24 HRS DAY 4
     Route: 042
  2. CYTARABINE. [Suspect]
     Active Substance: CYTARABINE
     Indication: PROPHYLAXIS
     Dosage: CYCLES 2, 4, 6, 8 OR CYCLES 3, 5, 7, 9,??3 G/M2 OVER 2 HRS, EVERY 12 HRS, 4 DOSES ON DAYS 2-3
     Route: 065
  3. CYTARABINE. [Suspect]
     Active Substance: CYTARABINE
     Indication: ACUTE LYMPHOCYTIC LEUKAEMIA
     Dosage: CYCLES 2, 4, 6, 8 OR CYCLES 3, 5, 7, 9,??3 G/M2 OVER 2 HRS, EVERY 12 HRS, 4 DOSES ON DAYS 2-3
     Route: 065
  4. SOLU-MEDROL [Suspect]
     Active Substance: METHYLPREDNISOLONE SODIUM SUCCINATE
     Indication: ACUTE LYMPHOCYTIC LEUKAEMIA
     Dosage: CYCLES 2, 4, 6, 8 OR CYCLES 3, 5, 7, 9??CONTINUOUS INFUSION DAYS 1-3
     Route: 042
  5. PREDNISONE. [Suspect]
     Active Substance: PREDNISONE
     Indication: ACUTE LYMPHOCYTIC LEUKAEMIA
     Dosage: CYCLE 2, DAYS 1-5
     Route: 048
  6. 6-MERCAPTOPURINE [Suspect]
     Active Substance: MERCAPTOPURINE
     Indication: ACUTE LYMPHOCYTIC LEUKAEMIA
     Route: 042
  7. GRANULOCYTE COLONY STIMULATING FACTOR [Concomitant]
     Active Substance: GRANULOCYTE COLONY-STIMULATING FACTOR NOS
     Dosage: DAILY UNTIL ANC } 10 9/ L
     Route: 058
  8. ACETAZOLAMIDE. [Concomitant]
     Active Substance: ACETAZOLAMIDE
     Route: 065
  9. CYTARABINE. [Suspect]
     Active Substance: CYTARABINE
     Indication: PROPHYLAXIS
     Dosage: CYCLE 2, 1.5 G/M2 CONTINUOUS INFUSION DAYS 1-2
     Route: 065
  10. METHOTREXATE [Suspect]
     Active Substance: METHOTREXATE
     Indication: PROPHYLAXIS
     Dosage: CYCLES 2, 4, 6, 8 OR CYCLES 3, 5, 7, 9??200 MG/M2 OVER 2 HRS THEN 800 MG/M2 OVER 22 HRS DAY 1
     Route: 042
  11. METHOTREXATE [Suspect]
     Active Substance: METHOTREXATE
     Indication: ACUTE LYMPHOCYTIC LEUKAEMIA
     Dosage: CYCLES 2, 4, 6, 8 OR CYCLES 3, 5, 7, 9??200 MG/M2 OVER 2 HRS THEN 800 MG/M2 OVER 22 HRS DAY 1
     Route: 042
  12. PEGFILGRASTIM [Concomitant]
     Active Substance: PEGFILGRASTIM
     Route: 058
  13. CYCLOPHOSPHAMIDE. [Suspect]
     Active Substance: CYCLOPHOSPHAMIDE
     Indication: ACUTE LYMPHOCYTIC LEUKAEMIA
     Dosage: CYCLES 1, 3, 5, 7 OR CYCLES 1, 4, 6, 8, OVER??2 HRS EVERY 12 HRS, 6 DOSES ON DAYS 1-3
     Route: 042
  14. CYTARABINE. [Suspect]
     Active Substance: CYTARABINE
     Indication: ACUTE LYMPHOCYTIC LEUKAEMIA
     Dosage: CYCLE 2, 1.5 G/M2 CONTINUOUS INFUSION DAYS 1-2
     Route: 065
  15. MESNA. [Suspect]
     Active Substance: MESNA
     Indication: ACUTE LYMPHOCYTIC LEUKAEMIA
     Dosage: CONTINUOUS INFUSION DAYS 1-3
     Route: 042
  16. PLATELET [Concomitant]
     Route: 065
  17. ALLOPURINOL. [Concomitant]
     Active Substance: ALLOPURINOL
     Route: 065
  18. L-ASPARAGINASE [Concomitant]
     Active Substance: ASPARAGINASE
     Dosage: 20,000 UNITS DAY 2 INTO 4 WEEKLY
     Route: 042
  19. VINCRISTINE [Suspect]
     Active Substance: VINCRISTINE
     Indication: ACUTE LYMPHOCYTIC LEUKAEMIA
     Dosage: CYCLES 1, 3, 5, 7 OR CYCLES 1, 4, 6, 8??DAYS 1, 11
     Route: 042
  20. DAUNORUBICIN [Suspect]
     Active Substance: DAUNORUBICIN
     Indication: ACUTE LYMPHOCYTIC LEUKAEMIA
     Dosage: CYCLE 2??OVER 12 HRS DAYS 1-2
     Route: 042
  21. RASBURICASE [Concomitant]
     Active Substance: RASBURICASE
     Route: 065
  22. DEXAMETHASONE. [Suspect]
     Active Substance: DEXAMETHASONE
     Indication: ACUTE LYMPHOCYTIC LEUKAEMIA
     Dosage: CYCLES 1, 3, 5, 7 OR CYCLES 1, 4, 6, 8??ORAL, DAYS 1-4, 11-14
     Route: 042
  23. LEUCOVORIN [Concomitant]
     Active Substance: LEUCOVORIN
     Dosage: 50-100 MG EVERY 4-6 HRS
     Route: 042
  24. RITUXIMAB [Suspect]
     Active Substance: RITUXIMAB
     Indication: ACUTE LYMPHOCYTIC LEUKAEMIA
     Dosage: CYCLES 1-4 DAYS 1, 11 IF CD20 LESS THAN OR EQUALS TO 20%
     Route: 042

REACTIONS (3)
  - Acute lymphocytic leukaemia [Unknown]
  - Drug ineffective [Unknown]
  - Product use issue [Unknown]
